FAERS Safety Report 9175356 (Version 3)
Quarter: 2013Q2

REPORT INFORMATION
  Report Type: Spontaneous
  Country: US (occurrence: US)
  Receive Date: 20130320
  Receipt Date: 20130418
  Transmission Date: 20140414
  Serious: Yes (Hospitalization)
  Sender: FDA-Public Use
  Company Number: US-BAXTER-2013BAX009714

PATIENT
  Sex: Female

DRUGS (3)
  1. DIANEAL LOW CALCIUM [Suspect]
     Indication: PERITONEAL DIALYSIS
     Route: 033
  2. DIANEAL LOW CALCIUM [Suspect]
     Indication: PERITONEAL DIALYSIS
     Route: 033
  3. DIANEAL LOW CALCIUM (ULTRABAG) [Suspect]
     Indication: PERITONEAL DIALYSIS
     Route: 033

REACTIONS (8)
  - Confusional state [Unknown]
  - Neurological symptom [Unknown]
  - Peritoneal dialysis complication [Unknown]
  - Depression [Recovering/Resolving]
  - Diarrhoea [Unknown]
  - Dehydration [Recovering/Resolving]
  - Malaise [Unknown]
  - Hypotension [Recovering/Resolving]
